FAERS Safety Report 7520931-3 (Version None)
Quarter: 2011Q2

REPORT INFORMATION
  Report Type: 
  Country: None (occurrence: None)
  Receive Date: 20110603
  Receipt Date: 20101130
  Transmission Date: 20111010
  Serious: Yes (Death)
  Sender: FDA-Public Use
  Company Number: US-BAYER-2010-001243

PATIENT
  Sex: Female

DRUGS (4)
  1. DROSPIRENONE AND ETHINYL ESTRADIOL [Suspect]
  2. YASMIN [Suspect]
  3. YAZ [Suspect]
  4. DROSPIRENONE AND ETHINYL ESTRADIOL [Suspect]

REACTIONS (4)
  - INJURY [None]
  - DEATH [None]
  - PAIN [None]
  - EMOTIONAL DISTRESS [None]
